FAERS Safety Report 9045615 (Version 1)
Quarter: 2013Q1

REPORT INFORMATION
  Report Type: Report from Study
  Country: US (occurrence: US)
  Receive Date: 20130131
  Receipt Date: 20130131
  Transmission Date: 20140127
  Serious: No
  Sender: FDA-Public Use
  Company Number: US-ABBOTT-12P-163-1010696-00

PATIENT
  Age: 57 Year
  Sex: Female

DRUGS (13)
  1. HUMIRA [Suspect]
     Indication: PSORIATIC ARTHROPATHY
     Dates: start: 201208
  2. METHOTREXATE [Concomitant]
     Indication: PROSTATIC SPECIFIC ANTIGEN
     Dosage: 8 PILLS WEEKLY
  3. FOLIC ACID [Concomitant]
     Indication: VITAMIN SUPPLEMENTATION
  4. LISINOPRIL [Concomitant]
     Indication: BLOOD PRESSURE
  5. SYNTHROID [Concomitant]
     Indication: BASEDOW^S DISEASE
  6. FAMOTIDINE [Concomitant]
     Indication: PROPHYLAXIS
  7. LYRICA [Concomitant]
     Indication: FIBROMYALGIA
  8. TIZANIDINE [Concomitant]
     Indication: FIBROMYALGIA
  9. IBUPROFEN [Concomitant]
     Indication: FIBROMYALGIA
  10. HYDROCODONE [Concomitant]
     Indication: FIBROMYALGIA
  11. MORPHINE [Concomitant]
     Indication: PAIN
  12. MORPHINE [Concomitant]
     Indication: PROSTATIC SPECIFIC ANTIGEN
  13. AMITRIPTYLINE [Concomitant]
     Indication: INSOMNIA
     Dosage: AT BEDTIME

REACTIONS (1)
  - Arthropod bite [Not Recovered/Not Resolved]
